FAERS Safety Report 4889054-6 (Version None)
Quarter: 2005Q4

REPORT INFORMATION
  Report Type: 
  Country: None (occurrence: None)
  Receive Date: 20051215
  Receipt Date: 20050928
  Transmission Date: 20060501
  Serious: Yes (Other)
  Sender: FDA-Public Use
  Company Number: 2005126391

PATIENT
  Age: 68 Year
  Sex: Female
  Weight: 48.9885 kg

DRUGS (1)
  1. BEXTRA [Suspect]
     Indication: MUSCULOSKELETAL DISCOMFORT
     Dosage: (10 MG,1 IN 1 D),ORAL
     Route: 048
     Dates: end: 20040601

REACTIONS (2)
  - BREAST CANCER [None]
  - HEART RATE INCREASED [None]
